FAERS Safety Report 21631970 (Version 2)
Quarter: 2022Q4

REPORT INFORMATION
  Report Type: Spontaneous
  Country: US (occurrence: None)
  Receive Date: 20221123
  Receipt Date: 20221124
  Transmission Date: 20230112
  Serious: Yes (Hospitalization, Other)
  Sender: FDA-Public Use
  Company Number: US-ROCHE-3218328

PATIENT
  Age: 67 Year
  Sex: Female
  Weight: 89.892 kg

DRUGS (26)
  1. ESBRIET [Suspect]
     Active Substance: PIRFENIDONE
     Indication: Idiopathic pulmonary fibrosis
     Route: 048
     Dates: start: 20190226
  2. ESBRIET [Suspect]
     Active Substance: PIRFENIDONE
     Route: 065
     Dates: start: 201608
  3. JARDIANCE [Concomitant]
     Active Substance: EMPAGLIFLOZIN
     Route: 048
  4. FLONASE [Concomitant]
     Active Substance: FLUTICASONE PROPIONATE
     Dosage: 50 MCG
     Route: 045
  5. TRESIBA [Concomitant]
     Active Substance: INSULIN DEGLUDEC
     Dosage: 20 ML NIGHTLY
  6. GLUCOPHAGE [Concomitant]
     Active Substance: METFORMIN HYDROCHLORIDE
     Route: 048
  7. PROTONIX [Concomitant]
     Active Substance: PANTOPRAZOLE SODIUM
     Route: 048
  8. DELTASONE [Concomitant]
     Active Substance: PREDNISONE
     Dosage: DAILY 6 TABLET, THEN 5 TABLETS, THEN 4 TABLET, THEN 3 TAB, THEN 2 TAB, THEN 1.5 TAB FOR 14 DAYS
     Route: 048
  9. OZEMPIC [Concomitant]
     Active Substance: SEMAGLUTIDE
     Route: 058
  10. ZOCOR [Concomitant]
     Active Substance: SIMVASTATIN
     Route: 048
  11. HUMALOG KWIKPEN [Concomitant]
     Active Substance: INSULIN LISPRO
     Dosage: 10 UNITS
     Route: 058
     Dates: start: 20221005
  12. AUGMENTIN [Concomitant]
     Active Substance: AMOXICILLIN\CLAVULANATE POTASSIUM
     Route: 048
  13. TESSALON [Concomitant]
     Active Substance: BENZONATATE
     Route: 048
  14. PREDNISONE [Concomitant]
     Active Substance: PREDNISONE
     Route: 048
  15. LOTRISONE [Concomitant]
     Active Substance: BETAMETHASONE DIPROPIONATE\CLOTRIMAZOLE
     Route: 061
  16. BACTRIM [Concomitant]
     Active Substance: SULFAMETHOXAZOLE\TRIMETHOPRIM
     Dosage: 400 TO 80 MG PER TABLET
  17. SOLU-MEDROL [Concomitant]
     Active Substance: METHYLPREDNISOLONE SODIUM SUCCINATE
     Route: 042
     Dates: start: 20211119
  18. CHOLECALCIFEROL [Concomitant]
     Active Substance: CHOLECALCIFEROL
  19. ATROVENT [Concomitant]
     Active Substance: IPRATROPIUM BROMIDE
  20. NAPROSYN [Concomitant]
     Active Substance: NAPROXEN
  21. ANORO ELLIPTA [Concomitant]
     Active Substance: UMECLIDINIUM BROMIDE\VILANTEROL TRIFENATATE
     Route: 055
  22. ERGOCALCIFEROL [Concomitant]
     Active Substance: ERGOCALCIFEROL
  23. ADVIL [Concomitant]
     Active Substance: IBUPROFEN
  24. DIFLUCAN [Concomitant]
     Active Substance: FLUCONAZOLE
     Dosage: TWICE A MONTH
  25. MUCINEX D [Concomitant]
     Active Substance: GUAIFENESIN\PSEUDOEPHEDRINE HYDROCHLORIDE
     Dosage: BY MOUTH
     Route: 048
  26. MYCOSTATIN [Concomitant]
     Active Substance: NYSTATIN
     Dosage: 1,00,000 UNIT SUSPENSION AND SWALLOW 5 ML (5,00,000 UNITS)

REACTIONS (25)
  - Idiopathic pulmonary fibrosis [Unknown]
  - Hypoxia [Unknown]
  - Productive cough [Unknown]
  - Rhinitis [Unknown]
  - Rhinorrhoea [Unknown]
  - Arthralgia [Unknown]
  - Weight decreased [Unknown]
  - Dyspnoea [Unknown]
  - Palpitations [Unknown]
  - Fatigue [Unknown]
  - Respiratory rate increased [Unknown]
  - Rales [Unknown]
  - Tachypnoea [Unknown]
  - Investigation abnormal [Unknown]
  - Chest pain [Unknown]
  - Constipation [Unknown]
  - Cough [Unknown]
  - Nasal discomfort [Unknown]
  - Cough [Unknown]
  - Musculoskeletal chest pain [Unknown]
  - Dry throat [Unknown]
  - Ill-defined disorder [Unknown]
  - Anal incontinence [Unknown]
  - Wheezing [Unknown]
  - Ill-defined disorder [Unknown]

NARRATIVE: CASE EVENT DATE: 20221001
